FAERS Safety Report 22353673 (Version 5)
Quarter: 2025Q2

REPORT INFORMATION
  Report Type: Spontaneous
  Country: JP (occurrence: JP)
  Receive Date: 20230523
  Receipt Date: 20250522
  Transmission Date: 20250716
  Serious: Yes (Hospitalization, Other)
  Sender: UCB
  Company Number: JP-UCBJ-CD202305564UCBPHAPROD

PATIENT
  Age: 69 Year
  Sex: Male

DRUGS (5)
  1. CIMZIA [Suspect]
     Active Substance: CERTOLIZUMAB PEGOL
     Indication: Psoriasis
     Dosage: 400 MILLIGRAM, EV 2 WEEKS(QOW)
     Route: 058
     Dates: start: 20230123, end: 20230424
  2. RIVOTRIL [Concomitant]
     Active Substance: CLONAZEPAM
     Indication: Product used for unknown indication
     Route: 048
  3. OLOPATADINE [Concomitant]
     Active Substance: OLOPATADINE
     Indication: Product used for unknown indication
     Dosage: 5 MILLIGRAM, 2X/DAY (BID)
     Route: 048
  4. HERBS\ROOTS [Concomitant]
     Active Substance: HERBS\ROOTS
     Indication: Product used for unknown indication
     Dosage: 6 GRAM, 2X/DAY (BID)
     Route: 048
  5. PROCTOSEDYL [CINCHOCAINE HYDROCHLORIDE;FRAMYCETIN SULFATE;HYDROCORTISO [Concomitant]
     Indication: Product used for unknown indication

REACTIONS (1)
  - Disseminated tuberculosis [Recovering/Resolving]

NARRATIVE: CASE EVENT DATE: 20230401
